FAERS Safety Report 9594531 (Version 2)
Quarter: 2014Q2

REPORT INFORMATION
  Report Type: Spontaneous
  Country: US (occurrence: None)
  Receive Date: 20131002
  Receipt Date: 20140401
  Transmission Date: 20141212
  Serious: Yes (Other)
  Sender: FDA-Public Use
  Company Number: 2013-US-001324

PATIENT
  Age: 33 Year
  Sex: Female

DRUGS (2)
  1. XYREM [Suspect]
     Indication: NARCOLEPSY
     Route: 048
     Dates: start: 20120509, end: 2012
  2. XYREM [Suspect]
     Indication: CATAPLEXY
     Route: 048
     Dates: start: 20120509, end: 2012

REACTIONS (3)
  - Ankle fracture [None]
  - Drug interaction [None]
  - Fall [None]
